FAERS Safety Report 14540399 (Version 2)
Quarter: 2018Q2

REPORT INFORMATION
  Report Type: Spontaneous
  Country: US (occurrence: US)
  Receive Date: 20180216
  Receipt Date: 20180529
  Transmission Date: 20180711
  Serious: Yes (Hospitalization, Other)
  Sender: FDA-Public Use
  Company Number: US-JNJFOC-20180221362

PATIENT
  Age: 51 Year
  Sex: Male
  Weight: 113.9 kg

DRUGS (1)
  1. XARELTO [Suspect]
     Active Substance: RIVAROXABAN
     Indication: DEEP VEIN THROMBOSIS
     Route: 048
     Dates: start: 201602, end: 201612

REACTIONS (3)
  - Gastrointestinal haemorrhage [Unknown]
  - Cerebral haemorrhage [Unknown]
  - Cerebrovascular accident [Unknown]

NARRATIVE: CASE EVENT DATE: 201709
